FAERS Safety Report 18335833 (Version 5)
Quarter: 2020Q4

REPORT INFORMATION
  Report Type: Spontaneous
  Country: BR (occurrence: BR)
  Receive Date: 20201001
  Receipt Date: 20201021
  Transmission Date: 20210113
  Serious: Yes (Other)
  Sender: FDA-Public Use
  Company Number: BR-PFIZER INC-2020374617

PATIENT
  Age: 27 Year
  Sex: Female
  Weight: 52 kg

DRUGS (5)
  1. CABERGOLINE. [Concomitant]
     Active Substance: CABERGOLINE
     Indication: PITUITARY TUMOUR BENIGN
     Dosage: 5 MG, WEEKLY (ONCE A WEEK)
     Dates: start: 2015
  2. ELIFORE [Suspect]
     Active Substance: DESVENLAFAXINE SUCCINATE
     Indication: MIXED ANXIETY AND DEPRESSIVE DISORDER
     Dosage: 100 MG, 1X/DAY
  3. PRISTIQ EXTENDED-RELEASE [Suspect]
     Active Substance: DESVENLAFAXINE SUCCINATE
     Indication: MAJOR DEPRESSION
     Dosage: 100 MG, DAILY (EVERY DAY, WITH MEDICAL MONITORING)
     Dates: start: 2019
  4. CABERGOLINE. [Concomitant]
     Active Substance: CABERGOLINE
     Indication: HYPERPROLACTINAEMIA
  5. ELIFORE [Suspect]
     Active Substance: DESVENLAFAXINE SUCCINATE
     Indication: MAJOR DEPRESSION
     Dosage: 100 MG, DAILY (EVERY DAY, WITH MEDICAL MONITORING)
     Dates: start: 2019

REACTIONS (5)
  - Disorientation [Not Recovered/Not Resolved]
  - Neurological symptom [Not Recovered/Not Resolved]
  - Blindness [Not Recovered/Not Resolved]
  - Gait disturbance [Not Recovered/Not Resolved]
  - Photopsia [Not Recovered/Not Resolved]
